FAERS Safety Report 11458953 (Version 1)
Quarter: 2015Q3

REPORT INFORMATION
  Report Type: Spontaneous
  Country: US (occurrence: US)
  Receive Date: 20150904
  Receipt Date: 20150904
  Transmission Date: 20151125
  Serious: No
  Sender: FDA-Public Use
  Company Number: US-PFIZER INC-2015276745

PATIENT
  Age: 60 Year
  Sex: Male
  Weight: 91 kg

DRUGS (15)
  1. PANTOPRAZOLE [Concomitant]
     Active Substance: PANTOPRAZOLE SODIUM
     Indication: GASTROOESOPHAGEAL REFLUX DISEASE
     Dosage: 40 MG, DAILY
  2. CARISOPRODOL. [Concomitant]
     Active Substance: CARISOPRODOL
     Indication: MUSCLE RELAXANT THERAPY
  3. DRONABINOL. [Concomitant]
     Active Substance: DRONABINOL
     Indication: NAUSEA
     Dosage: 10 MG, 2X/DAY(ONE TWICE A DAY AS NEEDED )
  4. CLOPIDOGREL [Concomitant]
     Active Substance: CLOPIDOGREL BISULFATE
     Indication: CARDIAC OPERATION
     Dosage: 75 MG, 1X/DAY
  5. TYLENOL WITH CODEINE NO.4 [Concomitant]
     Indication: BACK PAIN
     Dosage: UNK
  6. TYLENOL WITH CODEINE NO.4 [Concomitant]
     Indication: ARTHRITIS
  7. TYLENOL WITH CODEINE NO.4 [Concomitant]
     Indication: ARTHRALGIA
  8. TYLENOL WITH CODEINE NO.4 [Concomitant]
     Indication: INTERVERTEBRAL DISC PROTRUSION
  9. PROAIR HFA [Concomitant]
     Active Substance: ALBUTEROL SULFATE
     Indication: DYSPNOEA
     Dosage: UNK, AS NEEDED(2 SPRAYS EVERY 4 HOURS)
  10. LISINOPRIL. [Concomitant]
     Active Substance: LISINOPRIL
     Indication: BLOOD PRESSURE MEASUREMENT
     Dosage: 10 MG, DAILY(ONE AT BEDTIME)
  11. METOPROLOL [Concomitant]
     Active Substance: METOPROLOL
     Indication: BLOOD PRESSURE MEASUREMENT
     Dosage: 50 MG, 2X/DAY
  12. NICOTROL [Suspect]
     Active Substance: NICOTINE
     Indication: SMOKING CESSATION THERAPY
     Dosage: (1 SPRAY INTRANASALLY EACH SIDE EVERY HOUR FOR 12 WEEKS)
     Route: 045
     Dates: start: 20150713
  13. ATORVASTATIN [Concomitant]
     Active Substance: ATORVASTATIN
     Indication: BLOOD CHOLESTEROL
     Dosage: 20 MG, DAILY(1 AT BEDTIME)
  14. CARISOPRODOL. [Concomitant]
     Active Substance: CARISOPRODOL
     Indication: MUSCLE SPASMS
     Dosage: 350 MG, 2X/DAY
  15. KALETRA [Concomitant]
     Active Substance: LOPINAVIR\RITONAVIR
     Indication: HIV INFECTION
     Dosage: UNK, 2X/DAY (200/50MG)

REACTIONS (3)
  - Dysgeusia [Not Recovered/Not Resolved]
  - Nasal discomfort [Not Recovered/Not Resolved]
  - Cough [Not Recovered/Not Resolved]

NARRATIVE: CASE EVENT DATE: 20150713
